FAERS Safety Report 9614006 (Version 4)
Quarter: 2013Q4

REPORT INFORMATION
  Report Type: Report from Study
  Country: CA (occurrence: CA)
  Receive Date: 20131011
  Receipt Date: 20131205
  Transmission Date: 20140711
  Serious: Yes (Other)
  Sender: FDA-Public Use
  Company Number: CA-ROCHE-1287145

PATIENT
  Age: 50 Year
  Sex: Female
  Weight: 99.7 kg

DRUGS (8)
  1. AVASTIN [Suspect]
     Indication: INVASIVE DUCTAL BREAST CARCINOMA
     Route: 042
     Dates: start: 201307
  2. XELODA [Suspect]
     Indication: INVASIVE DUCTAL BREAST CARCINOMA
     Route: 048
     Dates: start: 201307
  3. XELODA [Suspect]
     Route: 048
     Dates: start: 201309
  4. VITAMIN D3 [Suspect]
     Indication: PRODUCT USED FOR UNKNOWN INDICATION
     Route: 065
  5. VASOTEC [Suspect]
     Indication: PRODUCT USED FOR UNKNOWN INDICATION
     Route: 065
  6. TYLENOL [Concomitant]
  7. IBUPROFEN [Concomitant]
  8. IXOTEN [Concomitant]
     Route: 065
     Dates: start: 201307

REACTIONS (17)
  - Incision site infection [Unknown]
  - Skin disorder [Unknown]
  - Hepatic enzyme increased [Recovered/Resolved]
  - C-reactive protein increased [Unknown]
  - Pain [Not Recovered/Not Resolved]
  - Skin disorder [Unknown]
  - Skin infection [Unknown]
  - Disease progression [Not Recovered/Not Resolved]
  - Musculoskeletal stiffness [Recovering/Resolving]
  - Cough [Unknown]
  - Menopausal symptoms [Not Recovered/Not Resolved]
  - Insomnia [Not Recovered/Not Resolved]
  - Anxiety [Not Recovered/Not Resolved]
  - Impaired healing [Not Recovered/Not Resolved]
  - Hypertension [Unknown]
  - Body mass index increased [Not Recovered/Not Resolved]
  - Oxygen saturation decreased [Unknown]
